FAERS Safety Report 24330495 (Version 1)
Quarter: 2024Q3

REPORT INFORMATION
  Report Type: Spontaneous
  Country: NL (occurrence: NL)
  Receive Date: 20240918
  Receipt Date: 20240918
  Transmission Date: 20241017
  Serious: Yes (Other)
  Sender: ACCORD
  Company Number: None

PATIENT
  Age: 60 Year
  Sex: Male
  Weight: 75 kg

DRUGS (3)
  1. ATORVASTATIN [Suspect]
     Active Substance: ATORVASTATIN
     Indication: Hypercholesterolaemia
     Dosage: 1 X PER DAY 1 PIECE
     Dates: start: 20240425
  2. ALBUTEROL [Concomitant]
     Active Substance: ALBUTEROL
     Dosage: POWDER FOR INHALATION 200 UG/DO / VENTOLIN DISKUS POWDER FOR INHALATION 200 MCG 60
  3. FLUTICASONE [Concomitant]
     Active Substance: FLUTICASONE
     Dosage: POWDER FOR INHALATION 100 UG/DO / FLIXOTIDE DISKUS POWDER FOR INHALATION 100 MCG 60

REACTIONS (4)
  - Myalgia [Not Recovered/Not Resolved]
  - Erectile dysfunction [Recovering/Resolving]
  - Somnolence [Recovering/Resolving]
  - Fatigue [Recovering/Resolving]
